FAERS Safety Report 6918975-5 (Version None)
Quarter: 2010Q3

REPORT INFORMATION
  Report Type: 
  Country: None (occurrence: None)
  Receive Date: 20100811
  Receipt Date: 20100731
  Transmission Date: 20110219
  Serious: Yes (Other)
  Sender: FDA-Public Use
  Company Number: JP-BRISTOL-MYERS SQUIBB COMPANY-15232754

PATIENT
  Age: 81 Year
  Sex: Female

DRUGS (1)
  1. MITOMYCIN [Suspect]
     Indication: PAPILLOMA
     Dosage: ROUTE:IO
     Route: 031
     Dates: start: 20071002, end: 20071023

REACTIONS (1)
  - CORNEAL EPITHELIUM DEFECT [None]
